FAERS Safety Report 12145154 (Version 1)
Quarter: 2016Q1

REPORT INFORMATION
  Report Type: Spontaneous
  Country: US (occurrence: US)
  Receive Date: 20160304
  Receipt Date: 20160304
  Transmission Date: 20160526
  Serious: Yes (Other)
  Sender: FDA-Public Use
  Company Number: US-ABBVIE-16P-163-1548532-00

PATIENT
  Sex: Male

DRUGS (8)
  1. ANDROGEL [Suspect]
     Active Substance: TESTOSTERONE
     Route: 061
     Dates: start: 200906, end: 201009
  2. ANDROGEL [Suspect]
     Active Substance: TESTOSTERONE
     Indication: ANDROGEN REPLACEMENT THERAPY
     Route: 061
     Dates: start: 200602, end: 200806
  3. ANDRODERM [Suspect]
     Active Substance: TESTOSTERONE
     Route: 065
     Dates: start: 201210, end: 201310
  4. ANDRODERM [Suspect]
     Active Substance: TESTOSTERONE
     Indication: ANDROGEN REPLACEMENT THERAPY
     Route: 065
     Dates: start: 200602, end: 200806
  5. ANDROGEL [Suspect]
     Active Substance: TESTOSTERONE
     Route: 061
     Dates: start: 201009, end: 201207
  6. ANDRODERM [Suspect]
     Active Substance: TESTOSTERONE
     Route: 065
     Dates: start: 200906, end: 201009
  7. ANDRODERM [Suspect]
     Active Substance: TESTOSTERONE
     Route: 065
     Dates: start: 201009, end: 201207
  8. ANDROGEL [Suspect]
     Active Substance: TESTOSTERONE
     Route: 061
     Dates: start: 201210, end: 201310

REACTIONS (2)
  - Acute myocardial infarction [Unknown]
  - Acute myocardial infarction [Unknown]

NARRATIVE: CASE EVENT DATE: 20071026
